FAERS Safety Report 12769400 (Version 1)
Quarter: 2016Q3

REPORT INFORMATION
  Report Type: Spontaneous
  Country: US (occurrence: US)
  Receive Date: 20160921
  Receipt Date: 20160921
  Transmission Date: 20161109
  Serious: Yes (Hospitalization)
  Sender: FDA-Public Use
  Company Number: US-009507513-1609USA009543

PATIENT
  Age: 57 Year
  Sex: Male

DRUGS (1)
  1. ISENTRESS [Suspect]
     Active Substance: RALTEGRAVIR POTASSIUM
     Indication: HIV INFECTION
     Dosage: 400 MG, TWICE A DAY
     Route: 048
     Dates: start: 20160906, end: 20160916

REACTIONS (2)
  - Dysphagia [Unknown]
  - Adverse event [Unknown]

NARRATIVE: CASE EVENT DATE: 201609
